FAERS Safety Report 15776826 (Version 1)
Quarter: 2018Q4

REPORT INFORMATION
  Report Type: Spontaneous
  Country: US (occurrence: US)
  Receive Date: 20181231
  Receipt Date: 20181231
  Transmission Date: 20190205
  Serious: No
  Sender: FDA-Public Use
  Company Number: US-PFIZER INC-2018535530

PATIENT
  Age: 54 Year
  Sex: Female

DRUGS (1)
  1. EUCRISA [Suspect]
     Active Substance: CRISABOROLE
     Dosage: UNK, 1X/DAY (AT BEDTIME)
     Route: 061
     Dates: start: 201811

REACTIONS (4)
  - Product use issue [Unknown]
  - Application site pain [Unknown]
  - Application site urticaria [Unknown]
  - Application site pruritus [Unknown]
